FAERS Safety Report 4923070-0 (Version None)
Quarter: 2006Q1

REPORT INFORMATION
  Report Type: 
  Country: None (occurrence: None)
  Receive Date: 20060113
  Receipt Date: 20050106
  Transmission Date: 20060701
  Serious: Yes (Other)
  Sender: FDA-Public Use
  Company Number: HQWYE195216JUL04

PATIENT
  Sex: Female
  Weight: 89.89 kg

DRUGS (3)
  1. PREMPRO [Suspect]
     Indication: HORMONE REPLACEMENT THERAPY
  2. PREMARIN [Suspect]
     Indication: HOT FLUSH
     Dosage: 0.625 MG, ORAL
     Route: 048
     Dates: start: 19871101
  3. PROVERA [Suspect]
     Indication: HOT FLUSH
     Dosage: 10 MG
     Dates: start: 19871101, end: 20000301

REACTIONS (2)
  - BREAST CANCER [None]
  - DEPRESSION [None]
